FAERS Safety Report 20432583 (Version 1)
Quarter: 2022Q1

REPORT INFORMATION
  Report Type: Spontaneous
  Country: US (occurrence: US)
  Receive Date: 20220204
  Receipt Date: 20220204
  Transmission Date: 20220423
  Serious: No
  Sender: FDA-Public Use
  Company Number: US-PFIZER INC-202200021405

PATIENT
  Age: 70 Year
  Sex: Male
  Weight: 105.6 kg

DRUGS (1)
  1. TOVIAZ [Suspect]
     Active Substance: FESOTERODINE FUMARATE
     Indication: Micturition urgency
     Dosage: 4 MG
     Route: 048

REACTIONS (3)
  - Drug ineffective [Unknown]
  - Hypertonic bladder [Unknown]
  - Nocturia [Unknown]
